FAERS Safety Report 20902643 (Version 6)
Quarter: 2022Q4

REPORT INFORMATION
  Report Type: Spontaneous
  Country: CN (occurrence: CN)
  Receive Date: 20220601
  Receipt Date: 20221018
  Transmission Date: 20230113
  Serious: Yes (Death, Hospitalization, Other)
  Sender: FDA-Public Use
  Company Number: CN-009507513-2205CHN007736

PATIENT
  Age: 19 Year
  Sex: Female

DRUGS (5)
  1. MONTELUKAST SODIUM [Suspect]
     Active Substance: MONTELUKAST SODIUM
     Indication: Bronchitis
     Dosage: 3 TABLETS EVERY NIGHT
     Route: 048
     Dates: start: 202112
  2. MONTELUKAST SODIUM [Suspect]
     Active Substance: MONTELUKAST SODIUM
     Indication: Insomnia
  3. AMBROXOL [Suspect]
     Active Substance: AMBROXOL
     Dosage: UNK
     Dates: start: 2022
  4. SELEXIPAG [Suspect]
     Active Substance: SELEXIPAG
     Indication: Pulmonary arterial pressure decreased
     Dosage: 0.2 MILLIGRAM, Q12H
     Dates: start: 20220502
  5. BECLOMETHASONE DIPROPIONATE [Suspect]
     Active Substance: BECLOMETHASONE DIPROPIONATE
     Dosage: UNK; SUSPENSION FOR INHALATION
     Dates: start: 202112

REACTIONS (60)
  - Cor pulmonale [Fatal]
  - Pulmonary arterial hypertension [Fatal]
  - Cardiac failure [Fatal]
  - Anaemia megaloblastic [Unknown]
  - Epilepsy [Unknown]
  - Drug-induced liver injury [Unknown]
  - Pneumonia [Unknown]
  - Leukaemoid reaction [Unknown]
  - Encephalitis [Unknown]
  - Hypoglycaemic encephalopathy [Unknown]
  - Cardiac dysfunction [Unknown]
  - Mitral valve incompetence [Unknown]
  - Pericardial effusion [Unknown]
  - Tricuspid valve incompetence [Unknown]
  - Lymphoma [Unknown]
  - Multiple organ dysfunction syndrome [Recovering/Resolving]
  - Myelodysplastic syndrome [Unknown]
  - Polyserositis [Unknown]
  - Haemophagocytic lymphohistiocytosis [Fatal]
  - Effusion [Unknown]
  - Pulmonary valve incompetence [Unknown]
  - Demyelination [Unknown]
  - Pericardial effusion [Unknown]
  - Pulmonary embolism [Unknown]
  - Hypokalaemia [Unknown]
  - Pancytopenia [Unknown]
  - Thrombocytopenia [Unknown]
  - Skin lesion [Unknown]
  - Hepatosplenomegaly [Unknown]
  - Hypoproteinaemia [Unknown]
  - Sinus tachycardia [Unknown]
  - Ovarian failure [Unknown]
  - Right atrial enlargement [Unknown]
  - Right ventricular enlargement [Unknown]
  - Lymphadenopathy [Unknown]
  - Electrolyte imbalance [Unknown]
  - Urticaria chronic [Unknown]
  - Drug hypersensitivity [Unknown]
  - Menstruation irregular [Recovered/Resolved]
  - Atelectasis [Unknown]
  - Decreased appetite [Recovering/Resolving]
  - Abdominal distension [Unknown]
  - Anaemia [Unknown]
  - Skin lesion [Unknown]
  - Effusion [Unknown]
  - Hypoproteinaemia [Unknown]
  - Anaemia [Unknown]
  - Hepatic function abnormal [Unknown]
  - Alopecia [Not Recovered/Not Resolved]
  - Weight decreased [Unknown]
  - Bronchitis [Not Recovered/Not Resolved]
  - Bone marrow disorder [Unknown]
  - Joint range of motion decreased [Unknown]
  - Amenorrhoea [Recovered/Resolved]
  - Asthenia [Unknown]
  - Insomnia [Not Recovered/Not Resolved]
  - Rash [Unknown]
  - Arthralgia [Recovering/Resolving]
  - Diarrhoea [Unknown]
  - Product use in unapproved indication [Unknown]

NARRATIVE: CASE EVENT DATE: 20200101
